FAERS Safety Report 5600135-1 (Version None)
Quarter: 2008Q1

REPORT INFORMATION
  Report Type: 
  Country: None (occurrence: None)
  Receive Date: 20080123
  Receipt Date: 20080114
  Transmission Date: 20080703
  Serious: Yes (Hospitalization)
  Sender: FDA-Public Use
  Company Number: B0504405A

PATIENT
  Age: 19 Year
  Sex: Female

DRUGS (3)
  1. LAMICTAL [Suspect]
     Indication: EPILEPSY
     Route: 048
     Dates: start: 20070924, end: 20071017
  2. KEPPRA [Suspect]
     Indication: EPILEPSY
     Dosage: 250MG TWICE PER DAY
     Route: 048
  3. URBANYL [Concomitant]
     Indication: EPILEPSY
     Dosage: 5U PER DAY
     Route: 048

REACTIONS (1)
  - HEPATOCELLULAR INJURY [None]
